FAERS Safety Report 9971902 (Version 1)
Quarter: 2014Q1

REPORT INFORMATION
  Report Type: Report from Study
  Country: US (occurrence: US)
  Receive Date: 20140306
  Receipt Date: 20140306
  Transmission Date: 20141002
  Serious: No
  Sender: FDA-Public Use
  Company Number: US-ABBVIE-13P-163-1148486-00

PATIENT
  Age: 52 Year
  Sex: Female

DRUGS (5)
  1. HUMIRA [Suspect]
     Indication: CROHN^S DISEASE
     Dates: start: 20130819, end: 20130819
  2. HUMIRA [Suspect]
     Dates: start: 20130902, end: 20130902
  3. HUMIRA [Suspect]
     Dates: start: 20130916
  4. AUGMENTIN [Concomitant]
     Indication: ABSCESS
     Dosage: TWO PILLS DAILY FOR LAST 1.5 MONTHS
  5. METRONIDAZOLE [Concomitant]
     Indication: ABSCESS
     Dosage: THREE PILLS DAILY FOR THE LAST MONTH

REACTIONS (4)
  - Hot flush [Not Recovered/Not Resolved]
  - Pain in extremity [Not Recovered/Not Resolved]
  - Nausea [Not Recovered/Not Resolved]
  - Musculoskeletal pain [Not Recovered/Not Resolved]
